FAERS Safety Report 7554417-7 (Version None)
Quarter: 2011Q2

REPORT INFORMATION
  Report Type: 
  Country: None (occurrence: None)
  Receive Date: 20110617
  Receipt Date: 20091201
  Transmission Date: 20111010
  Serious: Yes (Hospitalization)
  Sender: FDA-Public Use
  Company Number: A0833955A

PATIENT
  Age: 73 Year
  Sex: Female
  Weight: 90 kg

DRUGS (9)
  1. ACCURETIC [Concomitant]
  2. PLAVIX [Concomitant]
  3. AVANDIA [Suspect]
     Route: 048
     Dates: start: 20061201, end: 20070301
  4. TOPROL-XL [Concomitant]
  5. GLIPIZIDE [Concomitant]
  6. SINEMET [Concomitant]
  7. METFORMIN HCL [Concomitant]
  8. CADUET [Concomitant]
  9. PAROXETINE HCL [Concomitant]

REACTIONS (3)
  - ATRIAL FIBRILLATION [None]
  - ATRIAL FLUTTER [None]
  - CARDIAC FAILURE CONGESTIVE [None]
